FAERS Safety Report 11010563 (Version 1)
Quarter: 2015Q2

REPORT INFORMATION
  Report Type: Spontaneous
  Country: JP (occurrence: JP)
  Receive Date: 20150410
  Receipt Date: 20150410
  Transmission Date: 20150821
  Serious: Yes (Other)
  Sender: FDA-Public Use
  Company Number: JP-PFIZER INC-2015121345

PATIENT
  Age: 80 Year
  Sex: Female

DRUGS (7)
  1. DULOXETINE [Suspect]
     Active Substance: DULOXETINE
     Indication: PAIN
     Dosage: 20 MG, DAILY
     Route: 048
  2. DULOXETINE [Suspect]
     Active Substance: DULOXETINE
     Dosage: 60 MG, DAILY
     Route: 048
  3. ACETAMINOPHEN. [Suspect]
     Active Substance: ACETAMINOPHEN
     Indication: NEURALGIA
     Dosage: 600 MG, DAILY
     Route: 048
  4. FELBINAC [Concomitant]
     Active Substance: FELBINAC
     Indication: MUSCULOSKELETAL PAIN
     Dosage: 70 MG, DAILY
  5. PREGABALIN. [Suspect]
     Active Substance: PREGABALIN
     Indication: NEURALGIA
     Dosage: 75 MG, DAILY
     Route: 048
  6. PAROXETINE HYDROCHLORIDE. [Suspect]
     Active Substance: PAROXETINE HYDROCHLORIDE
     Indication: DEPRESSION
     Route: 048
  7. LOXOPROFEN [Suspect]
     Active Substance: LOXOPROFEN
     Indication: MUSCULOSKELETAL PAIN
     Dosage: 180 MG, DAILY
     Route: 048

REACTIONS (1)
  - Ileus [Recovered/Resolved]
